FAERS Safety Report 6147673-3 (Version None)
Quarter: 2009Q2

REPORT INFORMATION
  Report Type: 
  Country: None (occurrence: None)
  Receive Date: 20090408
  Receipt Date: 20090405
  Transmission Date: 20091009
  Serious: Yes (Death, Hospitalization)
  Sender: FDA-Public Use
  Company Number: PHHY2009EG12725

PATIENT
  Age: 75 Year
  Sex: Female
  Weight: 66 kg

DRUGS (5)
  1. ACLASTA [Suspect]
  2. LYRICA [Suspect]
     Indication: NEUROPATHY PERIPHERAL
     Dosage: 75 MG, BID
     Route: 048
  3. MYOLASTAM [Concomitant]
     Route: 048
  4. CONTROLOC [Concomitant]
     Dosage: 20 MG
  5. CATAFAST [Concomitant]

REACTIONS (5)
  - COMA [None]
  - DELIRIUM [None]
  - DISEASE PROGRESSION [None]
  - HYPERTENSION [None]
  - OEDEMA PERIPHERAL [None]
